FAERS Safety Report 8062282-7 (Version None)
Quarter: 2012Q1

REPORT INFORMATION
  Report Type: 
  Country: None (occurrence: None)
  Receive Date: 20120113
  Receipt Date: 20120105
  Transmission Date: 20120608
  Serious: Yes (Hospitalization, Disabling)
  Sender: FDA-Public Use
  Company Number: AUR-APL-2012-00267

PATIENT
  Age: 74 Year
  Sex: Female

DRUGS (2)
  1. SIMVASTATIN [Suspect]
     Indication: PRODUCT USED FOR UNKNOWN INDICATION
     Dosage: 20 MG (20 MG, 1 IN 1 D), ORAL
     Route: 048
  2. INEGY (INEGY) [Suspect]
     Indication: HYPERCHOLESTEROLAEMIA
     Dosage: 91 IN 1 D), ORAL
     Route: 048

REACTIONS (4)
  - TENDERNESS [None]
  - MYOPATHY [None]
  - PARESIS [None]
  - RHABDOMYOLYSIS [None]
